FAERS Safety Report 8448257-4 (Version None)
Quarter: 2012Q2

REPORT INFORMATION
  Report Type: 
  Country: None (occurrence: None)
  Receive Date: 20120619
  Receipt Date: 20120611
  Transmission Date: 20120825
  Serious: Yes (Other)
  Sender: FDA-Public Use
  Company Number: CN-ASTRAZENECA-2012SE38829

PATIENT
  Sex: Female

DRUGS (3)
  1. QUETIAPINE [Suspect]
     Dosage: 50-100 MG EVERY 1-3 DAYS
     Route: 048
  2. QUETIAPINE [Suspect]
     Indication: SCHIZOPHRENIA
     Route: 048
  3. QUETIAPINE [Suspect]
     Dosage: 150-800 MG DAILY FOR 52 WEEKS
     Route: 048

REACTIONS (2)
  - MENTAL DISORDER [None]
  - ALANINE AMINOTRANSFERASE INCREASED [None]
